FAERS Safety Report 5214762-7 (Version None)
Quarter: 2006Q4

REPORT INFORMATION
  Report Type: 
  Country: None (occurrence: None)
  Receive Date: 20061113
  Receipt Date: 20060901
  Transmission Date: 20070319
  Serious: Yes (Other)
  Sender: FDA-Public Use
  Company Number: US-JNJFOC-20060802382

PATIENT
  Age: 72 Year
  Sex: Female
  Weight: 67.1324 kg

DRUGS (9)
  1. LEVAQUIN [Suspect]
     Indication: PNEUMONIA
     Dosage: 500 MG, IN 1 DAY, INTRAVENOUS
     Route: 042
     Dates: start: 20060501, end: 20060501
  2. HYDROCHLOROTHIAZIDE [Concomitant]
  3. ISOSORBIDE (ISOSORBIDE) [Concomitant]
  4. LISINOPRIL [Concomitant]
  5. ASPIRIN [Concomitant]
  6. EVISTA [Concomitant]
  7. LIPITOR [Concomitant]
  8. AEROBID [Concomitant]
  9. SINGULAIR [Concomitant]

REACTIONS (1)
  - TENDON RUPTURE [None]
